FAERS Safety Report 4448841-9 (Version None)
Quarter: 2004Q3

REPORT INFORMATION
  Report Type: 
  Country: None (occurrence: None)
  Receive Date: 20040909
  Receipt Date: 20040907
  Transmission Date: 20050211
  Serious: Yes (Death)
  Sender: FDA-Public Use
  Company Number: AE-904-216

PATIENT
  Age: 54 Year
  Sex: Male

DRUGS (2)
  1. LIDODERM [Suspect]
     Indication: TENDONITIS
     Dosage: 1 PATCH, 12 HOURS/AT LEAST OVER A YEAR
  2. MEDICATION FOR HIGH BLOOD PRESSURE AND ARTHRITIS [Concomitant]

REACTIONS (1)
  - ROAD TRAFFIC ACCIDENT [None]
